FAERS Safety Report 8167764-5 (Version None)
Quarter: 2012Q1

REPORT INFORMATION
  Report Type: 
  Country: None (occurrence: None)
  Receive Date: 20120227
  Receipt Date: 20120217
  Transmission Date: 20120608
  Serious: Yes (Other)
  Sender: FDA-Public Use
  Company Number: US-ALLERGAN-1202302US

PATIENT
  Sex: Male

DRUGS (1)
  1. OZURDEX [Suspect]
     Indication: PRODUCT USED FOR UNKNOWN INDICATION
     Dosage: UNK
     Route: 031
     Dates: start: 20120131, end: 20120131

REACTIONS (2)
  - DEVICE DISLOCATION [None]
  - VISUAL IMPAIRMENT [None]
